FAERS Safety Report 15551317 (Version 1)
Quarter: 2018Q4

REPORT INFORMATION
  Report Type: Spontaneous
  Country: US (occurrence: US)
  Receive Date: 20181025
  Receipt Date: 20181025
  Transmission Date: 20190205
  Serious: No
  Sender: FDA-Public Use
  Company Number: None

PATIENT

DRUGS (1)
  1. AIMOVIG [Suspect]
     Active Substance: ERENUMAB-AOOE
     Indication: MIGRAINE

REACTIONS (8)
  - Anxiety [None]
  - Pyrexia [None]
  - Abnormal dreams [None]
  - Feeling hot [None]
  - Blepharospasm [None]
  - Hot flush [None]
  - Fatigue [None]
  - Constipation [None]
